FAERS Safety Report 4449591-5 (Version None)
Quarter: 2004Q3

REPORT INFORMATION
  Report Type: 
  Country: None (occurrence: None)
  Receive Date: 20040913
  Receipt Date: 20040901
  Transmission Date: 20050211
  Serious: Yes (Hospitalization)
  Sender: FDA-Public Use
  Company Number: HQWYE970509JUL04

PATIENT
  Age: 57 Year
  Sex: Female

DRUGS (8)
  1. PANTOPRAZOLE SODIUM [Suspect]
     Indication: PROPHYLAXIS
     Dosage: 40 MG 1X PER 1 DAY ORAL
     Route: 048
     Dates: end: 20040205
  2. ALLOPURINOL [Suspect]
     Indication: HYPERURICAEMIA
     Dosage: 300 MG 1X PER 1 DAY ORAL
     Route: 048
     Dates: end: 20040205
  3. ISONIAZID [Suspect]
     Indication: PULMONARY TUBERCULOSIS
     Dosage: 300 MG 1X PER 1 DAY ORAL
     Route: 048
     Dates: start: 20031215, end: 20040205
  4. PYRAZINAMIDE [Suspect]
     Indication: PULMONARY TUBERCULOSIS
     Dosage: 500 MG 4X PER 1 DAY ORAL
     Route: 048
     Dates: start: 20031215, end: 20040208
  5. RIFAMPICIN [Suspect]
     Indication: PULMONARY TUBERCULOSIS
     Dosage: 600 MG 1X PER 1 DAY ORAL
     Route: 048
     Dates: start: 20031215, end: 20040201
  6. RIFAMPICIN [Suspect]
     Indication: PULMONARY TUBERCULOSIS
     Dosage: 600 MG 1X PER 1 DAY ORAL
     Route: 048
     Dates: start: 20040224, end: 20040201
  7. LEVOTHYROXINE SODIUM [Concomitant]
  8. ETHAMBUTOL HCL [Concomitant]

REACTIONS (2)
  - COAGULATION TIME PROLONGED [None]
  - HEPATITIS ACUTE [None]
